FAERS Safety Report 6317522-9 (Version None)
Quarter: 2009Q3

REPORT INFORMATION
  Report Type: 
  Country: None (occurrence: None)
  Receive Date: 20090821
  Receipt Date: 20090807
  Transmission Date: 20100115
  Serious: Yes (Hospitalization)
  Sender: FDA-Public Use
  Company Number: IT-ROCHE-607599

PATIENT
  Sex: Female
  Weight: 83 kg

DRUGS (13)
  1. METHOXY POLYETHYLENE GLYCOL-EPOETIN BETA [Suspect]
     Dosage: DATE OF LAST DOSE PRIOR TO SAE 08 JAN 2009 FORM: PRE-FILLED SYRINGE
     Route: 042
     Dates: start: 20081211, end: 20090120
  2. ASPIRIN [Concomitant]
     Dates: start: 20060626, end: 20090109
  3. LEVOTHYROXINE SODIUM [Concomitant]
     Dates: start: 19900101
  4. SEVELAMER [Concomitant]
     Dates: start: 20060701
  5. BIMATOPROST [Concomitant]
     Dates: start: 19900101
  6. LANSOPRAZOLE [Concomitant]
     Dosage: DRUG REPORTED AS LANSOPRAZOLIO
     Dates: start: 20070502
  7. CARBONATE CALCIUM [Concomitant]
     Dates: start: 20070221
  8. ATORVASTATINA [Concomitant]
     Dosage: DRUG: AZORVARTA CNA
     Dates: start: 20080206
  9. CALCITRIOL [Concomitant]
     Dates: start: 20080618
  10. INSULIN [Concomitant]
     Dosage: TDD/UNIT: 50 U DRUG: LISIPRO INSULIN
     Dates: start: 20061016
  11. LANTUS [Concomitant]
     Dosage: DRUG REPORTED AS ^GLARGINE^
     Dates: start: 20061016
  12. BRINZOLAMIDE [Concomitant]
     Dates: start: 19900101
  13. IDROXIZINA [Concomitant]
     Dosage: DRUG REPORTED AS ^IDROXIZINA CLORIDRAZO^
     Dates: start: 20080220

REACTIONS (2)
  - ABDOMINAL PAIN [None]
  - MELAENA [None]
